FAERS Safety Report 8223443-7 (Version None)
Quarter: 2012Q1

REPORT INFORMATION
  Report Type: 
  Country: None (occurrence: None)
  Receive Date: 20120316
  Receipt Date: 20120307
  Transmission Date: 20120608
  Serious: Yes (Hospitalization, Other)
  Sender: FDA-Public Use
  Company Number: 2008JP002400

PATIENT
  Age: 23 Year
  Sex: Female

DRUGS (5)
  1. PROGRAF [Suspect]
     Indication: BONE MARROW TRANSPLANT
     Dosage: ORAL, ORAL
     Route: 048
  2. PREDNISOLONE [Concomitant]
  3. FUNGUARD (MICAFUNGIN) [Concomitant]
  4. METHOTREXATE [Concomitant]
  5. ITRACONAZOLE [Suspect]
     Indication: FUNGAL INFECTION
     Dosage: ORAL, ORAL
     Route: 048
     Dates: start: 20070801

REACTIONS (6)
  - DRUG INEFFECTIVE [None]
  - DRUG INTERACTION [None]
  - DIABETES MELLITUS [None]
  - PNEUMONIA FUNGAL [None]
  - CHRONIC GRAFT VERSUS HOST DISEASE [None]
  - HEPATIC FUNCTION ABNORMAL [None]
